FAERS Safety Report 9762837 (Version 1)
Quarter: 2013Q4

REPORT INFORMATION
  Report Type: Spontaneous
  Country: US (occurrence: US)
  Receive Date: 20131216
  Receipt Date: 20131216
  Transmission Date: 20140711
  Serious: No
  Sender: FDA-Public Use
  Company Number: US-FOUGERA-2013FO000080

PATIENT
  Age: 55 Year
  Sex: Female
  Weight: 59.02 kg

DRUGS (3)
  1. SOLARAZE [Suspect]
     Indication: PRECANCEROUS SKIN LESION
     Route: 061
     Dates: start: 201212, end: 201301
  2. SOLARAZE [Suspect]
     Indication: PROPHYLAXIS
  3. CALCIUM WITH VIT. D [Concomitant]
     Indication: VITAMIN SUPPLEMENTATION

REACTIONS (3)
  - Application site pruritus [Unknown]
  - Application site dryness [Unknown]
  - Off label use [Recovered/Resolved]
